FAERS Safety Report 13737916 (Version 1)
Quarter: 2017Q3

REPORT INFORMATION
  Report Type: Spontaneous
  Country: US (occurrence: US)
  Receive Date: 20170710
  Receipt Date: 20170710
  Transmission Date: 20171127
  Serious: Yes (Other)
  Sender: FDA-Public Use
  Company Number: US-SAOL THERAPEUTICS-2016SAO00984

PATIENT
  Sex: Male

DRUGS (2)
  1. BACLOFEN. [Suspect]
     Active Substance: BACLOFEN
     Indication: MUSCLE SPASTICITY
     Dosage: 100 ?G, \DAY
     Route: 037
     Dates: start: 20160919
  2. BACLOFEN. [Suspect]
     Active Substance: BACLOFEN
     Indication: CEREBRAL PALSY
     Dosage: UNK ?G, UNK
     Route: 037

REACTIONS (8)
  - Hirsutism [Unknown]
  - Precocious puberty [Unknown]
  - Hypotonia [Unknown]
  - Sleep disorder [Unknown]
  - Partial seizures [Unknown]
  - Muscle spasms [Unknown]
  - Device failure [Unknown]
  - Muscle contracture [Unknown]
